FAERS Safety Report 16773567 (Version 15)
Quarter: 2025Q1

REPORT INFORMATION
  Report Type: Spontaneous
  Country: CA (occurrence: CA)
  Receive Date: 20190904
  Receipt Date: 20250131
  Transmission Date: 20250408
  Serious: Yes (Other)
  Sender: BAUSCH AND LOMB
  Company Number: CA-BAUSCH-BL-2019-025025

PATIENT
  Age: 53 Year
  Sex: Female
  Weight: 60 kg

DRUGS (165)
  1. WELLBUTRIN [Suspect]
     Active Substance: BUPROPION HYDROCHLORIDE
     Indication: Urticaria
     Route: 065
  2. WELLBUTRIN [Suspect]
     Active Substance: BUPROPION HYDROCHLORIDE
     Route: 065
  3. BUPROPION [Suspect]
     Active Substance: BUPROPION
     Indication: Urticaria
     Route: 065
  4. BUPROPION [Suspect]
     Active Substance: BUPROPION
     Route: 065
  5. ALBUTEROL [Suspect]
     Active Substance: ALBUTEROL
     Indication: Product used for unknown indication
     Route: 055
  6. ALBUTEROL [Suspect]
     Active Substance: ALBUTEROL
     Route: 065
  7. ALBUTEROL [Suspect]
     Active Substance: ALBUTEROL
     Route: 065
  8. ALBUTEROL [Suspect]
     Active Substance: ALBUTEROL
     Route: 055
  9. ALBUTEROL [Suspect]
     Active Substance: ALBUTEROL
     Route: 065
  10. ALBUTEROL [Suspect]
     Active Substance: ALBUTEROL
     Route: 065
  11. ALBUTEROL [Suspect]
     Active Substance: ALBUTEROL
     Route: 065
  12. ALBUTEROL [Suspect]
     Active Substance: ALBUTEROL
     Route: 065
  13. NITROGLYCERIN [Suspect]
     Active Substance: NITROGLYCERIN
     Indication: Oesophageal spasm
     Route: 065
  14. NITROGLYCERIN [Suspect]
     Active Substance: NITROGLYCERIN
     Route: 065
  15. AMITRIPTYLINE [Suspect]
     Active Substance: AMITRIPTYLINE
     Indication: Depression
     Route: 065
  16. AMITRIPTYLINE [Suspect]
     Active Substance: AMITRIPTYLINE
     Route: 065
  17. FUROSEMIDE [Suspect]
     Active Substance: FUROSEMIDE
     Indication: Fluid retention
     Route: 065
  18. FUROSEMIDE [Suspect]
     Active Substance: FUROSEMIDE
     Route: 065
  19. CLOPIDOGREL [Suspect]
     Active Substance: CLOPIDOGREL BISULFATE
     Indication: Anticoagulant therapy
     Route: 065
  20. CLOPIDOGREL [Suspect]
     Active Substance: CLOPIDOGREL BISULFATE
     Route: 065
  21. GABAPENTIN [Suspect]
     Active Substance: GABAPENTIN
     Indication: Product used for unknown indication
     Route: 065
  22. GABAPENTIN [Suspect]
     Active Substance: GABAPENTIN
     Route: 065
  23. GABAPENTIN [Suspect]
     Active Substance: GABAPENTIN
     Route: 065
  24. CEPHALEXIN [Suspect]
     Active Substance: CEPHALEXIN
     Indication: Vomiting
     Route: 065
  25. CEPHALEXIN [Suspect]
     Active Substance: CEPHALEXIN
     Indication: Malaise
     Route: 065
  26. CEPHALEXIN [Suspect]
     Active Substance: CEPHALEXIN
     Indication: Dizziness
  27. CEPHALEXIN [Suspect]
     Active Substance: CEPHALEXIN
     Indication: Product used for unknown indication
  28. ALEVE [Suspect]
     Active Substance: NAPROXEN SODIUM
     Indication: Pruritus
     Route: 065
  29. FERROUS GLUCONATE [Suspect]
     Active Substance: FERROUS GLUCONATE
     Indication: Iron deficiency
     Route: 065
  30. CEFUROXIME AXETIL [Suspect]
     Active Substance: CEFUROXIME AXETIL
     Indication: Malaise
     Route: 065
  31. CEFUROXIME AXETIL [Suspect]
     Active Substance: CEFUROXIME AXETIL
     Indication: Fatigue
     Route: 065
  32. CEFUROXIME AXETIL [Suspect]
     Active Substance: CEFUROXIME AXETIL
     Indication: Diarrhoea
  33. POTASSIUM [Suspect]
     Active Substance: POTASSIUM
     Indication: Product used for unknown indication
     Dosage: APO-K 600MG
     Route: 065
  34. POTASSIUM [Suspect]
     Active Substance: POTASSIUM
     Dosage: APO-K 600MG
     Route: 065
  35. POTASSIUM [Suspect]
     Active Substance: POTASSIUM
     Route: 065
  36. SULFAMETHOXAZOLE\TRIMETHOPRIM [Suspect]
     Active Substance: SULFAMETHOXAZOLE\TRIMETHOPRIM
     Indication: Stomatitis
     Route: 065
  37. SULFAMETHOXAZOLE\TRIMETHOPRIM [Suspect]
     Active Substance: SULFAMETHOXAZOLE\TRIMETHOPRIM
     Route: 065
  38. ATROVENT HFA [Suspect]
     Active Substance: IPRATROPIUM BROMIDE
     Indication: Product used for unknown indication
     Route: 065
  39. ATROVENT HFA [Suspect]
     Active Substance: IPRATROPIUM BROMIDE
     Route: 065
  40. BREO ELLIPTA [Suspect]
     Active Substance: FLUTICASONE FUROATE\VILANTEROL TRIFENATATE
     Indication: Product used for unknown indication
     Route: 055
  41. BREO ELLIPTA [Suspect]
     Active Substance: FLUTICASONE FUROATE\VILANTEROL TRIFENATATE
     Route: 055
  42. BREO ELLIPTA [Suspect]
     Active Substance: FLUTICASONE FUROATE\VILANTEROL TRIFENATATE
     Route: 055
  43. BREO ELLIPTA [Suspect]
     Active Substance: FLUTICASONE FUROATE\VILANTEROL TRIFENATATE
     Route: 065
  44. BREO ELLIPTA [Suspect]
     Active Substance: FLUTICASONE FUROATE\VILANTEROL TRIFENATATE
     Route: 065
  45. BREO ELLIPTA [Suspect]
     Active Substance: FLUTICASONE FUROATE\VILANTEROL TRIFENATATE
     Route: 055
  46. CELEBREX [Suspect]
     Active Substance: CELECOXIB
     Indication: Oesophageal pain
     Route: 065
  47. CELEBREX [Suspect]
     Active Substance: CELECOXIB
     Indication: Abdominal pain upper
     Route: 065
  48. CIPROFLOXACIN HYDROCHLORIDE [Suspect]
     Active Substance: CIPROFLOXACIN HYDROCHLORIDE
     Indication: Urticaria
     Route: 065
  49. CIPROFLOXACIN HYDROCHLORIDE [Suspect]
     Active Substance: CIPROFLOXACIN HYDROCHLORIDE
     Route: 065
  50. PERINDOPRIL [Suspect]
     Active Substance: PERINDOPRIL
     Indication: Blood pressure measurement
     Route: 065
  51. PERINDOPRIL [Suspect]
     Active Substance: PERINDOPRIL
     Route: 065
  52. CYMBALTA [Suspect]
     Active Substance: DULOXETINE HYDROCHLORIDE
     Indication: Depression
     Route: 065
  53. CYMBALTA [Suspect]
     Active Substance: DULOXETINE HYDROCHLORIDE
     Indication: Anxiety
     Route: 065
  54. CYMBALTA [Suspect]
     Active Substance: DULOXETINE HYDROCHLORIDE
     Route: 065
  55. FLOVENT [Suspect]
     Active Substance: FLUTICASONE PROPIONATE
     Indication: Chronic obstructive pulmonary disease
     Route: 065
  56. FLOVENT [Suspect]
     Active Substance: FLUTICASONE PROPIONATE
     Indication: Asthma
     Route: 065
  57. FLOVENT [Suspect]
     Active Substance: FLUTICASONE PROPIONATE
     Route: 065
  58. FLOVENT [Suspect]
     Active Substance: FLUTICASONE PROPIONATE
     Route: 065
  59. FLOVENT [Suspect]
     Active Substance: FLUTICASONE PROPIONATE
     Route: 065
  60. FOSAVANCE [Suspect]
     Active Substance: ALENDRONATE SODIUM\CHOLECALCIFEROL
     Indication: Osteoporosis postmenopausal
     Route: 065
  61. GRAVOL [Suspect]
     Active Substance: DIMENHYDRINATE
     Indication: Anxiety
     Route: 065
  62. INDOMETHACIN [Suspect]
     Active Substance: INDOMETHACIN
     Indication: Vomiting
     Route: 065
  63. INDOMETHACIN [Suspect]
     Active Substance: INDOMETHACIN
     Indication: Vision blurred
     Route: 065
  64. INDOMETHACIN [Suspect]
     Active Substance: INDOMETHACIN
     Indication: Abdominal pain upper
     Route: 005
  65. INDOMETHACIN [Suspect]
     Active Substance: INDOMETHACIN
     Route: 005
  66. INDOMETHACIN [Suspect]
     Active Substance: INDOMETHACIN
     Route: 065
  67. NOVORAPID [Suspect]
     Active Substance: INSULIN ASPART
     Indication: Type 2 diabetes mellitus
     Route: 058
  68. NOVORAPID [Suspect]
     Active Substance: INSULIN ASPART
     Route: 065
  69. KETAMINE [Suspect]
     Active Substance: KETAMINE
     Indication: Hallucination
     Route: 065
  70. MOXIFLOXACIN HYDROCHLORIDE [Suspect]
     Active Substance: MOXIFLOXACIN HYDROCHLORIDE
     Indication: Rash
     Route: 065
  71. NITROLINGUAL [Suspect]
     Active Substance: NITROGLYCERIN
     Indication: Oesophageal spasm
     Route: 065
  72. NITROFURANTOIN [Suspect]
     Active Substance: NITROFURANTOIN
     Indication: Cystitis
     Route: 065
  73. PENICILLIN G [Suspect]
     Active Substance: PENICILLIN G
     Indication: Product used for unknown indication
     Route: 065
  74. PREDNISONE [Suspect]
     Active Substance: PREDNISONE
     Indication: Product used for unknown indication
     Route: 065
  75. SENOKOT [Suspect]
     Active Substance: SENNOSIDES
     Indication: Abdominal pain
     Route: 065
  76. SENOKOT [Suspect]
     Active Substance: SENNOSIDES
     Route: 065
  77. SPIRIVA [Suspect]
     Active Substance: TIOTROPIUM BROMIDE MONOHYDRATE
     Indication: Product used for unknown indication
     Route: 065
  78. TYLENOL WITH CODEINE [Suspect]
     Active Substance: ACETAMINOPHEN\CODEINE PHOSPHATE
     Indication: Pruritus
     Route: 065
  79. TYLENOL WITH CODEINE [Suspect]
     Active Substance: ACETAMINOPHEN\CODEINE PHOSPHATE
     Route: 065
  80. VIOXX [Suspect]
     Active Substance: ROFECOXIB
     Indication: Urticaria
     Route: 065
  81. VIOXX [Suspect]
     Active Substance: ROFECOXIB
     Route: 065
  82. ACETAMINOPHEN\CODEINE PHOSPHATE [Suspect]
     Active Substance: ACETAMINOPHEN\CODEINE PHOSPHATE
     Indication: Pruritus
     Route: 065
  83. ACETAMINOPHEN\CODEINE PHOSPHATE [Suspect]
     Active Substance: ACETAMINOPHEN\CODEINE PHOSPHATE
     Route: 065
  84. ACETAMINOPHEN\CODEINE PHOSPHATE [Suspect]
     Active Substance: ACETAMINOPHEN\CODEINE PHOSPHATE
     Route: 065
  85. ALENDRONATE SODIUM\CHOLECALCIFEROL [Suspect]
     Active Substance: ALENDRONATE SODIUM\CHOLECALCIFEROL
     Indication: Osteoporosis postmenopausal
     Dosage: ALENDRONATE SODIUM;VITAMIN D3
     Route: 065
  86. ALENDRONATE SODIUM\CHOLECALCIFEROL [Suspect]
     Active Substance: ALENDRONATE SODIUM\CHOLECALCIFEROL
     Indication: Osteoporosis
     Dosage: ALENDRONATE SODIUM; VITAMIN D3 (3 ADMINISTRATION)
     Route: 065
  87. ALENDRONATE SODIUM\CHOLECALCIFEROL [Suspect]
     Active Substance: ALENDRONATE SODIUM\CHOLECALCIFEROL
     Indication: Menopause
     Route: 048
  88. ALENDRONATE SODIUM\CHOLECALCIFEROL [Suspect]
     Active Substance: ALENDRONATE SODIUM\CHOLECALCIFEROL
     Route: 065
  89. ALENDRONATE SODIUM\CHOLECALCIFEROL [Suspect]
     Active Substance: ALENDRONATE SODIUM\CHOLECALCIFEROL
     Route: 065
  90. AVELOX [Suspect]
     Active Substance: MOXIFLOXACIN HYDROCHLORIDE
     Indication: Rash
     Route: 065
  91. CEFUROXIME AXETIL [Suspect]
     Active Substance: CEFUROXIME AXETIL
     Indication: Malaise
     Route: 065
  92. CEFUROXIME AXETIL [Suspect]
     Active Substance: CEFUROXIME AXETIL
     Indication: Fatigue
     Route: 065
  93. CEFUROXIME AXETIL [Suspect]
     Active Substance: CEFUROXIME AXETIL
     Indication: Diarrhoea
     Route: 065
  94. CEFUROXIME AXETIL [Suspect]
     Active Substance: CEFUROXIME AXETIL
     Route: 065
  95. CEFUROXIME AXETIL [Suspect]
     Active Substance: CEFUROXIME AXETIL
     Route: 065
  96. CEFUROXIME AXETIL [Suspect]
     Active Substance: CEFUROXIME AXETIL
     Route: 065
  97. CEFUROXIME AXETIL [Suspect]
     Active Substance: CEFUROXIME AXETIL
     Route: 065
  98. INDOMETHACIN SODIUM [Suspect]
     Active Substance: INDOMETHACIN SODIUM
     Indication: Vomiting
     Route: 065
  99. INDOMETHACIN SODIUM [Suspect]
     Active Substance: INDOMETHACIN SODIUM
     Indication: Vision blurred
  100. INDOMETHACIN SODIUM [Suspect]
     Active Substance: INDOMETHACIN SODIUM
     Indication: Abdominal pain upper
  101. NAPROXEN SODIUM [Suspect]
     Active Substance: NAPROXEN SODIUM
     Indication: Pruritus
     Route: 065
  102. NAPROXEN SODIUM [Suspect]
     Active Substance: NAPROXEN SODIUM
     Route: 065
  103. POTASSIUM CHLORIDE [Suspect]
     Active Substance: POTASSIUM CHLORIDE
     Indication: Product used for unknown indication
     Route: 065
  104. POTASSIUM CHLORIDE [Suspect]
     Active Substance: POTASSIUM CHLORIDE
     Route: 065
  105. POTASSIUM CHLORIDE [Suspect]
     Active Substance: POTASSIUM CHLORIDE
     Route: 065
  106. POTASSIUM CHLORIDE [Suspect]
     Active Substance: POTASSIUM CHLORIDE
     Route: 065
  107. POTASSIUM CHLORIDE [Suspect]
     Active Substance: POTASSIUM CHLORIDE
     Route: 065
  108. POTASSIUM CHLORIDE [Suspect]
     Active Substance: POTASSIUM CHLORIDE
     Route: 065
  109. POTASSIUM CHLORIDE [Suspect]
     Active Substance: POTASSIUM CHLORIDE
     Route: 065
  110. INSULIN ASPART [Suspect]
     Active Substance: INSULIN ASPART
     Indication: Type 2 diabetes mellitus
     Route: 065
  111. INSULIN ASPART [Suspect]
     Active Substance: INSULIN ASPART
     Route: 058
  112. PERINDOPRIL [Suspect]
     Active Substance: PERINDOPRIL
     Indication: Blood pressure measurement
     Dosage: PERINDOPRIL ARGININE
     Route: 065
  113. PERINDOPRIL [Suspect]
     Active Substance: PERINDOPRIL
     Indication: Blood pressure abnormal
     Dosage: PERINDOPRIL
     Route: 065
  114. PERINDOPRIL [Suspect]
     Active Substance: PERINDOPRIL
     Route: 065
  115. TIOTROPIUM BROMIDE MONOHYDRATE [Suspect]
     Active Substance: TIOTROPIUM BROMIDE MONOHYDRATE
     Indication: Product used for unknown indication
     Route: 065
  116. VITAMIN D3 [Suspect]
     Active Substance: CHOLECALCIFEROL
     Indication: Osteoporosis postmenopausal
     Route: 065
  117. VITAMIN D3 [Suspect]
     Active Substance: CHOLECALCIFEROL
     Indication: Osteoporosis
     Route: 065
  118. VITAMIN D3 [Suspect]
     Active Substance: CHOLECALCIFEROL
     Indication: Menopausal symptoms
     Route: 065
  119. VITAMIN D3 [Suspect]
     Active Substance: CHOLECALCIFEROL
     Route: 065
  120. VITAMIN D3 [Suspect]
     Active Substance: CHOLECALCIFEROL
     Route: 065
  121. VITAMIN D3 [Suspect]
     Active Substance: CHOLECALCIFEROL
     Route: 065
  122. ALENDRONATE SODIUM [Suspect]
     Active Substance: ALENDRONATE SODIUM
     Indication: Osteoporosis postmenopausal
     Route: 048
  123. ALENDRONATE SODIUM [Suspect]
     Active Substance: ALENDRONATE SODIUM
     Indication: Osteoporosis
     Route: 065
  124. ALENDRONATE SODIUM [Suspect]
     Active Substance: ALENDRONATE SODIUM
     Indication: Menopause
     Route: 065
  125. ALENDRONATE SODIUM [Suspect]
     Active Substance: ALENDRONATE SODIUM
     Route: 065
  126. ALENDRONATE SODIUM [Suspect]
     Active Substance: ALENDRONATE SODIUM
     Route: 048
  127. ACETAMINOPHEN [Suspect]
     Active Substance: ACETAMINOPHEN
     Indication: Pruritus
     Route: 065
  128. CAFFEINE [Suspect]
     Active Substance: CAFFEINE
     Indication: Pruritus
     Route: 065
  129. CODEINE [Suspect]
     Active Substance: CODEINE
     Indication: Pruritus
     Route: 065
  130. CODEINE [Suspect]
     Active Substance: CODEINE
     Route: 065
  131. MACROBID [Suspect]
     Active Substance: NITROFURANTOIN\NITROFURANTOIN MONOHYDRATE
     Indication: Cystitis
     Route: 065
  132. FERROUS GLUCONATE [Suspect]
     Active Substance: FERROUS GLUCONATE
     Indication: Iron deficiency
     Route: 065
  133. FERROUS GLUCONATE [Suspect]
     Active Substance: FERROUS GLUCONATE
     Route: 065
  134. NITROFURANTOIN [Suspect]
     Active Substance: NITROFURANTOIN
     Indication: Cystitis
     Route: 065
  135. NITROFURANTOIN [Suspect]
     Active Substance: NITROFURANTOIN
     Route: 065
  136. NITROFURANTOIN [Suspect]
     Active Substance: NITROFURANTOIN
     Route: 048
  137. PERINDOPRIL ARGININE [Suspect]
     Active Substance: PERINDOPRIL ARGININE
     Indication: Blood pressure measurement
     Dosage: TABLET (ORALLY DISINTEGRATING)
     Route: 048
  138. PERINDOPRIL ARGININE [Suspect]
     Active Substance: PERINDOPRIL ARGININE
     Dosage: TABLET (ORALLY DISINTEGRATING)
     Route: 065
  139. PERINDOPRIL ARGININE [Suspect]
     Active Substance: PERINDOPRIL ARGININE
     Dosage: ARCOSYL PLUS, NOT SPECIFIED
     Route: 048
  140. PERINDOPRIL ARGININE [Suspect]
     Active Substance: PERINDOPRIL ARGININE
     Dosage: ARCOSYL PLUS
     Route: 048
  141. CYPROHEPTADINE HYDROCHLORIDE [Suspect]
     Active Substance: CYPROHEPTADINE HYDROCHLORIDE
     Indication: Urticaria
     Route: 065
  142. CYPROHEPTADINE HYDROCHLORIDE [Suspect]
     Active Substance: CYPROHEPTADINE HYDROCHLORIDE
     Route: 065
  143. CLARITHROMYCIN [Suspect]
     Active Substance: CLARITHROMYCIN
     Indication: Product used for unknown indication
     Route: 065
  144. CIPRO [Suspect]
     Active Substance: CIPROFLOXACIN HYDROCHLORIDE
     Indication: Urticaria
     Route: 065
  145. SULFADIAZINE\TRIMETHOPRIM [Suspect]
     Active Substance: SULFADIAZINE\TRIMETHOPRIM
     Indication: Stomatitis
     Route: 065
  146. SULFAMETHOXAZOLE [Suspect]
     Active Substance: SULFAMETHOXAZOLE
     Indication: Stomatitis
     Route: 065
  147. INSULIN NOS [Suspect]
     Active Substance: INSULIN NOS
     Indication: Type 2 diabetes mellitus
     Route: 058
  148. INSULIN NOS [Suspect]
     Active Substance: INSULIN NOS
     Route: 065
  149. MOXIFLOXACIN [Suspect]
     Active Substance: MOXIFLOXACIN
     Indication: Rash
     Route: 065
  150. PENICILLIN [Suspect]
     Active Substance: PENICILLIN
     Indication: Product used for unknown indication
     Route: 065
  151. ASPIRIN [Concomitant]
     Active Substance: ASPIRIN
     Indication: Product used for unknown indication
  152. AZITHROMYCIN DIHYDRATE [Concomitant]
     Active Substance: AZITHROMYCIN DIHYDRATE
     Indication: Product used for unknown indication
  153. AZITHROMYCIN DIHYDRATE [Concomitant]
     Active Substance: AZITHROMYCIN DIHYDRATE
     Route: 065
  154. CLOPIDOGREL BISULFATE [Concomitant]
     Active Substance: CLOPIDOGREL BISULFATE
     Indication: Anticoagulant therapy
  155. CLONIDINE [Concomitant]
     Active Substance: CLONIDINE
     Indication: Product used for unknown indication
  156. PANTOPRAZOLE SODIUM [Concomitant]
     Active Substance: PANTOPRAZOLE SODIUM
     Indication: Product used for unknown indication
  157. PANTOPRAZOLE SODIUM [Concomitant]
     Active Substance: PANTOPRAZOLE SODIUM
  158. ROSUVASTATIN CALCIUM [Concomitant]
     Active Substance: ROSUVASTATIN CALCIUM
     Indication: Blood cholesterol abnormal
  159. SUMATRIPTAN SUCCINATE [Concomitant]
     Active Substance: SUMATRIPTAN SUCCINATE
     Indication: Product used for unknown indication
     Route: 065
  160. PANTOPRAZOLE SODIUM [Concomitant]
     Active Substance: PANTOPRAZOLE SODIUM
     Indication: Product used for unknown indication
  161. ASPIRIN [Concomitant]
     Active Substance: ASPIRIN
     Indication: Product used for unknown indication
     Route: 065
  162. AZITHROMYCIN [Concomitant]
     Active Substance: AZITHROMYCIN
     Indication: Product used for unknown indication
  163. CLOPIDOGREL [Concomitant]
     Active Substance: CLOPIDOGREL BISULFATE
     Indication: Product used for unknown indication
  164. ROSUVASTATIN [Concomitant]
     Active Substance: ROSUVASTATIN
     Indication: Product used for unknown indication
     Route: 065
  165. SUMATRIPTAN [Concomitant]
     Active Substance: SUMATRIPTAN
     Indication: Product used for unknown indication
     Route: 065

REACTIONS (31)
  - Sleep apnoea syndrome [Not Recovered/Not Resolved]
  - Oesophageal spasm [Not Recovered/Not Resolved]
  - Fibromyalgia [Not Recovered/Not Resolved]
  - Fluid retention [Not Recovered/Not Resolved]
  - Obstructive sleep apnoea syndrome [Not Recovered/Not Resolved]
  - Lymphoedema [Not Recovered/Not Resolved]
  - Oesophageal pain [Not Recovered/Not Resolved]
  - Feeling abnormal [Not Recovered/Not Resolved]
  - Migraine [Not Recovered/Not Resolved]
  - Bronchitis [Not Recovered/Not Resolved]
  - Vision blurred [Not Recovered/Not Resolved]
  - Pneumonia [Not Recovered/Not Resolved]
  - Cystitis [Not Recovered/Not Resolved]
  - Diarrhoea [Not Recovered/Not Resolved]
  - Myocardial infarction [Not Recovered/Not Resolved]
  - Stomatitis [Not Recovered/Not Resolved]
  - Fatigue [Not Recovered/Not Resolved]
  - Hyperhidrosis [Not Recovered/Not Resolved]
  - Pruritus [Not Recovered/Not Resolved]
  - Malaise [Not Recovered/Not Resolved]
  - Rash [Not Recovered/Not Resolved]
  - Abdominal pain [Not Recovered/Not Resolved]
  - Abdominal pain upper [Not Recovered/Not Resolved]
  - Agitation [Not Recovered/Not Resolved]
  - Hallucination [Not Recovered/Not Resolved]
  - Vomiting [Not Recovered/Not Resolved]
  - Tinnitus [Not Recovered/Not Resolved]
  - Depression [Not Recovered/Not Resolved]
  - Anxiety [Not Recovered/Not Resolved]
  - Dizziness [Not Recovered/Not Resolved]
  - Urticaria [Not Recovered/Not Resolved]
